FAERS Safety Report 4972352-5 (Version None)
Quarter: 2006Q1

REPORT INFORMATION
  Report Type: 
  Country: None (occurrence: None)
  Receive Date: 20060215
  Receipt Date: 20051116
  Transmission Date: 20060701
  Serious: No
  Sender: FDA-Public Use
  Company Number: US200511001255

PATIENT
  Sex: Male

DRUGS (3)
  1. CIALIS [Suspect]
     Dosage: 10 MG, AS NEEDED, ORAL
     Route: 048
  2. CIALIS [Suspect]
     Dosage: 20 MG, AS NEEDED, ORAL
     Route: 048
  3. SILDENAFIL CITRATE (SILDENAFIL CITRATE) [Concomitant]

REACTIONS (4)
  - ERYTHEMA [None]
  - FLUSHING [None]
  - NASAL CONGESTION [None]
  - THERAPEUTIC RESPONSE DECREASED [None]
